FAERS Safety Report 20095888 (Version 1)
Quarter: 2021Q4

REPORT INFORMATION
  Report Type: Spontaneous
  Country: CN (occurrence: CN)
  Receive Date: 20211122
  Receipt Date: 20211122
  Transmission Date: 20220303
  Serious: Yes (Other)
  Sender: FDA-Public Use
  Company Number: CN-BAXTER-2021BAX036823

PATIENT
  Age: 52 Year
  Sex: Female
  Weight: 72.5 kg

DRUGS (4)
  1. CYCLOPHOSPHAMIDE [Suspect]
     Active Substance: CYCLOPHOSPHAMIDE
     Indication: Breast cancer
     Dosage: CYCLOPHOSPHAMIDE (1 G) + 0.9% SODIUM CHLORIDE (100 ML)
     Route: 041
     Dates: start: 20211024, end: 20211025
  2. CYCLOPHOSPHAMIDE [Suspect]
     Active Substance: CYCLOPHOSPHAMIDE
     Dosage: DOSE RE-INTRODUCED, CYCLOPHOSPHAMIDE + 0.9% SODIUM CHLORIDE
     Route: 041
  3. SODIUM CHLORIDE [Suspect]
     Active Substance: SODIUM CHLORIDE
     Indication: Medication dilution
     Dosage: CYCLOPHOSPHAMIDE (1 G) + 0.9% SODIUM CHLORIDE (100 ML)
     Route: 041
     Dates: start: 20211024, end: 20211025
  4. SODIUM CHLORIDE [Suspect]
     Active Substance: SODIUM CHLORIDE
     Dosage: DOSE RE-INTRODUCED, CYCLOPHOSPHAMIDE + 0.9% SODIUM CHLORIDE
     Route: 041

REACTIONS (1)
  - Myelosuppression [Recovered/Resolved]

NARRATIVE: CASE EVENT DATE: 20211108
